FAERS Safety Report 24104392 (Version 2)
Quarter: 2024Q3

REPORT INFORMATION
  Report Type: Spontaneous
  Country: US (occurrence: US)
  Receive Date: 20240717
  Receipt Date: 20240830
  Transmission Date: 20241017
  Serious: Yes (Death, Other)
  Sender: ASTELLAS
  Company Number: US-ASTELLAS-2024US019997

PATIENT
  Sex: Male

DRUGS (1)
  1. PADCEV [Suspect]
     Active Substance: ENFORTUMAB VEDOTIN-EJFV
     Indication: Product used for unknown indication
     Dosage: 20 MG, UNKNOWN FREQUENCY
     Route: 065

REACTIONS (1)
  - Death [Fatal]
